FAERS Safety Report 24161385 (Version 3)
Quarter: 2024Q4

REPORT INFORMATION
  Report Type: Spontaneous
  Country: US (occurrence: US)
  Receive Date: 20240801
  Receipt Date: 20241216
  Transmission Date: 20250115
  Serious: No
  Sender: SANOFI AVENTIS
  Company Number: US-SA-SAC20240718000278

PATIENT
  Age: 49 Year
  Sex: Female
  Weight: 188 kg

DRUGS (2)
  1. DUPIXENT [Suspect]
     Active Substance: DUPILUMAB
     Indication: Asthma
     Dosage: 300 MG, QOW
     Route: 058
     Dates: start: 20230520
  2. CAMZYOS [Suspect]
     Active Substance: MAVACAMTEN
     Dosage: UNK

REACTIONS (5)
  - Dyspnoea [Unknown]
  - Peripheral swelling [Unknown]
  - Sinus disorder [Unknown]
  - Vertigo [Unknown]
  - Dizziness [Unknown]
